FAERS Safety Report 12699472 (Version 3)
Quarter: 2016Q3

REPORT INFORMATION
  Report Type: Spontaneous
  Country: BR (occurrence: BR)
  Receive Date: 20160830
  Receipt Date: 20160908
  Transmission Date: 20161109
  Serious: Yes (Hospitalization, Other)
  Sender: FDA-Public Use
  Company Number: BR-009507513-1608BRA014320

PATIENT
  Sex: Female
  Weight: 54 kg

DRUGS (3)
  1. MERCILON [Suspect]
     Active Substance: DESOGESTREL\ETHINYL ESTRADIOL
     Indication: MENSTRUAL CYCLE MANAGEMENT
  2. MERCILON [Suspect]
     Active Substance: DESOGESTREL\ETHINYL ESTRADIOL
     Indication: MENSTRUAL DISORDER
     Dosage: UNK
     Route: 048
  3. MERCILON [Suspect]
     Active Substance: DESOGESTREL\ETHINYL ESTRADIOL
     Indication: CONTRACEPTION

REACTIONS (5)
  - Anal fistula [Not Recovered/Not Resolved]
  - Product use issue [Unknown]
  - Meniscus injury [Recovered/Resolved]
  - Joint injury [Recovered/Resolved]
  - Constipation [Not Recovered/Not Resolved]

NARRATIVE: CASE EVENT DATE: 2014
